FAERS Safety Report 18050972 (Version 3)
Quarter: 2020Q3

REPORT INFORMATION
  Report Type: Spontaneous
  Country: US (occurrence: US)
  Receive Date: 20200721
  Receipt Date: 20200916
  Transmission Date: 20201103
  Serious: Yes (Other)
  Sender: FDA-Public Use
  Company Number: US-MYLANLABS-2020M1063753

PATIENT
  Age: 52 Year
  Sex: Female
  Weight: 71 kg

DRUGS (4)
  1. GLATIRAMER ACETATE INJECTION [Suspect]
     Active Substance: GLATIRAMER ACETATE
     Dosage: 40 MILLIGRAM, 3XW(3X PER WEEK)
     Route: 065
  2. GLATIRAMER ACETATE INJECTION [Suspect]
     Active Substance: GLATIRAMER ACETATE
     Indication: MULTIPLE SCLEROSIS
     Dosage: 40 MILLIGRAM, 3XW(3X PER WEEK)
     Route: 058
     Dates: start: 2020
  3. GLATIRAMER ACETATE INJECTION [Suspect]
     Active Substance: GLATIRAMER ACETATE
     Dosage: 40 MILLIGRAM, 3XW(3X PER WEEK)
     Dates: start: 20200726
  4. GLATIRAMER ACETATE INJECTION [Suspect]
     Active Substance: GLATIRAMER ACETATE
     Indication: RELAPSING-REMITTING MULTIPLE SCLEROSIS
     Dosage: 40 MILLIGRAM, 3XW (3X PER WEEK)
     Route: 058
     Dates: start: 20200625, end: 2020

REACTIONS (21)
  - Inflammatory marker increased [Unknown]
  - Injection site erythema [Unknown]
  - Seizure [Unknown]
  - Fall [Unknown]
  - Poor quality sleep [Unknown]
  - Chills [Not Recovered/Not Resolved]
  - Injection site haemorrhage [Not Recovered/Not Resolved]
  - Injection site pain [Unknown]
  - Injection site swelling [Unknown]
  - Ankle fracture [Unknown]
  - Injection site urticaria [Unknown]
  - Pyrexia [Unknown]
  - Migraine [Unknown]
  - Injection site mass [Recovering/Resolving]
  - Hyperhidrosis [Not Recovered/Not Resolved]
  - Flushing [Unknown]
  - Inflammation [Unknown]
  - Product dose omission issue [Unknown]
  - Injection site pruritus [Unknown]
  - Headache [Unknown]
  - Pain [Unknown]

NARRATIVE: CASE EVENT DATE: 2020
